FAERS Safety Report 6041097-5 (Version None)
Quarter: 2009Q1

REPORT INFORMATION
  Report Type: 
  Country: None (occurrence: None)
  Receive Date: 20090116
  Receipt Date: 20080821
  Transmission Date: 20090719
  Serious: No
  Sender: FDA-Public Use
  Company Number: US-BRISTOL-MYERS SQUIBB COMPANY-14309405

PATIENT
  Age: 11 Year

DRUGS (2)
  1. ABILIFY [Suspect]
  2. PROZAC [Suspect]

REACTIONS (2)
  - DYSKINESIA [None]
  - PNEUMONIA [None]
